FAERS Safety Report 17934219 (Version 1)
Quarter: 2020Q2

REPORT INFORMATION
  Report Type: Spontaneous
  Country: US (occurrence: US)
  Receive Date: 20200624
  Receipt Date: 20200624
  Transmission Date: 20200714
  Serious: Yes (Other)
  Sender: FDA-Public Use
  Company Number: US-AUROBINDO-AUR-APL-2020-030514

PATIENT

DRUGS (1)
  1. OLMESARTAN MEDOXOMIL+HYDROCHLOROTHIAZIDE 40MG/12.5MG [Suspect]
     Active Substance: HYDROCHLOROTHIAZIDE\OLMESARTAN MEDOXOMIL
     Indication: PRODUCT USED FOR UNKNOWN INDICATION
     Dosage: UNK
     Route: 065

REACTIONS (4)
  - Head discomfort [Unknown]
  - Balance disorder [Unknown]
  - Product substitution issue [Unknown]
  - Blood pressure increased [Recovered/Resolved]
